FAERS Safety Report 15026706 (Version 2)
Quarter: 2018Q2

REPORT INFORMATION
  Report Type: Spontaneous
  Country: TW (occurrence: TW)
  Receive Date: 20180618
  Receipt Date: 20180627
  Transmission Date: 20180711
  Serious: Yes (Other)
  Sender: FDA-Public Use
  Company Number: TW-SA-2018SA146771

PATIENT
  Age: 65 Year
  Sex: Male

DRUGS (1)
  1. FABRAZYME [Suspect]
     Active Substance: AGALSIDASE BETA
     Indication: FABRY^S DISEASE
     Dosage: UNK
     Dates: start: 2017

REACTIONS (4)
  - Hypertrophic cardiomyopathy [Unknown]
  - Condition aggravated [Unknown]
  - Oedema [Unknown]
  - Drug ineffective [Unknown]
